FAERS Safety Report 5748511-0 (Version None)
Quarter: 2008Q2

REPORT INFORMATION
  Report Type: 
  Country: None (occurrence: None)
  Receive Date: 20080521
  Receipt Date: 20080505
  Transmission Date: 20081010
  Serious: Yes (Other)
  Sender: FDA-Public Use
  Company Number: 2008011659

PATIENT
  Age: 30 Year
  Sex: Female
  Weight: 45.3597 kg

DRUGS (1)
  1. ADVANCED LISTERINE WITH TARTAR PROTECTION (MENTHOL, METHYL SALICYLATE, [Suspect]
     Indication: INTENTIONAL DRUG MISUSE
     Dosage: WHOLE BOTTLES AT A TIME ONCE A DAY, ORAL
     Route: 048
     Dates: start: 20080201

REACTIONS (3)
  - INCORRECT ROUTE OF DRUG ADMINISTRATION [None]
  - INTENTIONAL DRUG MISUSE [None]
  - MALAISE [None]
